FAERS Safety Report 17803264 (Version 1)
Quarter: 2020Q2

REPORT INFORMATION
  Report Type: Spontaneous
  Country: DE (occurrence: DE)
  Receive Date: 20200519
  Receipt Date: 20200519
  Transmission Date: 20200714
  Serious: Yes (Other)
  Sender: FDA-Public Use
  Company Number: DE-PFIZER INC-2020196741

PATIENT
  Sex: Female
  Weight: 130 kg

DRUGS (2)
  1. MEDIKINET [METHYLPHENIDATE HYDROCHLORIDE] [Suspect]
     Active Substance: METHYLPHENIDATE HYDROCHLORIDE
     Dosage: UNK
     Route: 065
     Dates: start: 201712
  2. SERTRALINE HCL [Suspect]
     Active Substance: SERTRALINE HYDROCHLORIDE
     Dosage: UNK
     Route: 065
     Dates: start: 201804

REACTIONS (3)
  - Venous thrombosis [Unknown]
  - Superficial vein prominence [Unknown]
  - Erythema [Unknown]

NARRATIVE: CASE EVENT DATE: 20191205
